FAERS Safety Report 8847048 (Version 1)
Quarter: 2012Q4

REPORT INFORMATION
  Report Type: 
  Country: JP (occurrence: JP)
  Receive Date: 20121018
  Receipt Date: 20121018
  Transmission Date: 20130627
  Serious: Yes (Other)
  Sender: FDA-Public Use
  Company Number: JP-SANOFI-AVENTIS-2012SA075972

PATIENT
  Age: 72 Year
  Sex: Male

DRUGS (3)
  1. OXALIPLATIN [Suspect]
     Indication: LARGE INTESTINE CARCINOMA
     Dosage: injection
     Route: 041
     Dates: start: 201006
  2. XELODA [Concomitant]
     Indication: LARGE INTESTINE CARCINOMA
     Dosage: recieved a total of 3 cycles
     Dates: start: 201006
  3. AVASTIN [Concomitant]
     Indication: LARGE INTESTINE CARCINOMA
     Dates: start: 201006

REACTIONS (2)
  - Splenomegaly [Recovering/Resolving]
  - Thrombocytopenia [Recovering/Resolving]
